FAERS Safety Report 7568048-6 (Version None)
Quarter: 2011Q2

REPORT INFORMATION
  Report Type: 
  Country: None (occurrence: None)
  Receive Date: 20110623
  Receipt Date: 20110620
  Transmission Date: 20111010
  Serious: Yes (Life-Threatening)
  Sender: FDA-Public Use
  Company Number: CA-SHIONOGI, INC-2011000103

PATIENT

DRUGS (1)
  1. TWINJECT 0.3 [Suspect]
     Indication: ANAPHYLACTIC REACTION
     Dosage: 0.3 MG, UNK
     Dates: start: 20110618, end: 20110618

REACTIONS (2)
  - DRUG ADMINISTRATION ERROR [None]
  - APPLICATION SITE HAEMATOMA [None]
